FAERS Safety Report 7742036-9 (Version None)
Quarter: 2011Q3

REPORT INFORMATION
  Report Type: 
  Country: None (occurrence: None)
  Receive Date: 20110912
  Receipt Date: 20110901
  Transmission Date: 20111222
  Serious: Yes (Hospitalization)
  Sender: FDA-Public Use
  Company Number: GB-US-EMD SERONO, INC.-7029815

PATIENT
  Sex: Female

DRUGS (9)
  1. PREDNISOLONE [Concomitant]
  2. FLUDROCORTISONE ACETATE [Concomitant]
  3. SAIZEN [Suspect]
     Dates: start: 20101231, end: 20110211
  4. VENTOLIN HFA [Concomitant]
  5. PREDNISOLONE [Concomitant]
  6. SAIZEN [Suspect]
     Indication: PRODUCT USED FOR UNKNOWN INDICATION
     Dates: start: 20100412, end: 20110211
  7. SAIZEN [Suspect]
     Dates: start: 20101119
  8. LEVOTHYROXINE SODIUM [Concomitant]
  9. SYMBICORT [Concomitant]

REACTIONS (5)
  - HYPOAESTHESIA [None]
  - NORMAL NEWBORN [None]
  - BALANCE DISORDER [None]
  - MATERNAL EXPOSURE DURING PREGNANCY [None]
  - BRAIN MASS [None]
